FAERS Safety Report 10157202 (Version 2)
Quarter: 2014Q3

REPORT INFORMATION
  Report Type: Spontaneous
  Country: IT (occurrence: IT)
  Receive Date: 20140507
  Receipt Date: 20140718
  Transmission Date: 20150326
  Serious: Yes (Hospitalization)
  Sender: FDA-Public Use
  Company Number: IT-SA-2014SA058598

PATIENT
  Sex: Male

DRUGS (5)
  1. INDOXEN [Suspect]
     Active Substance: INDOMETHACIN
     Indication: INTENTIONAL SELF-INJURY
     Dosage: DOSE- 5 DOSAGE UNIT TOTAL
     Route: 048
     Dates: start: 20140426, end: 20140426
  2. EN [Suspect]
     Active Substance: DELORAZEPAM
     Indication: INTENTIONAL SELF-INJURY
     Dosage: DOSE- 80 DROPS TOTAL
     Route: 048
     Dates: start: 20140426, end: 20140426
  3. DAPAROX [Suspect]
     Active Substance: PAROXETINE HYDROCHLORIDE
     Indication: INTENTIONAL SELF-INJURY
     Dosage: DOSE- 2 DOSAGE UNIT TOTAL
     Route: 048
     Dates: start: 20140426, end: 20140426
  4. GABAPENTIN. [Concomitant]
     Active Substance: GABAPENTIN
  5. ZOLPIDEM TARTRATE. [Suspect]
     Active Substance: ZOLPIDEM TARTRATE
     Indication: INTENTIONAL SELF-INJURY
     Dosage: DOSE - 40 DOASGE UNIT TOTAL
     Route: 048
     Dates: start: 20140426, end: 20140426

REACTIONS (2)
  - Drug abuse [Unknown]
  - Bradykinesia [Recovered/Resolved]

NARRATIVE: CASE EVENT DATE: 20140427
